FAERS Safety Report 15002804 (Version 1)
Quarter: 2018Q2

REPORT INFORMATION
  Report Type: Spontaneous
  Country: CA (occurrence: CA)
  Receive Date: 20180612
  Receipt Date: 20180612
  Transmission Date: 20180711
  Serious: Yes (Other)
  Sender: FDA-Public Use
  Company Number: CA-HLSUS-2018-CA-000881

PATIENT
  Age: 38 Year
  Sex: Male

DRUGS (1)
  1. CLOZAPINE. [Suspect]
     Active Substance: CLOZAPINE
     Indication: SCHIZOPHRENIA
     Route: 048

REACTIONS (11)
  - Chest pain [Unknown]
  - Body temperature abnormal [Unknown]
  - Fatigue [Unknown]
  - Troponin increased [Unknown]
  - Influenza like illness [Unknown]
  - Left ventricular dysfunction [Unknown]
  - C-reactive protein increased [Unknown]
  - Tachycardia [Unknown]
  - Myalgia [Unknown]
  - Vomiting [Unknown]
  - Myocarditis [Unknown]
